FAERS Safety Report 16999434 (Version 1)
Quarter: 2019Q4

REPORT INFORMATION
  Report Type: Spontaneous
  Country: US (occurrence: US)
  Receive Date: 20190925
  Receipt Date: 20190925
  Transmission Date: 20200122
  Serious: No
  Sender: FDA-Public Use
  Company Number: None

PATIENT

DRUGS (1)
  1. PHENYTOIN. [Suspect]
     Active Substance: PHENYTOIN
     Route: 048

REACTIONS (4)
  - Drug dispensed to wrong patient [None]
  - Malaise [None]
  - Feeling abnormal [None]
  - Wrong patient received product [None]
